FAERS Safety Report 11144658 (Version 1)
Quarter: 2015Q2

REPORT INFORMATION
  Report Type: Spontaneous
  Country: DK (occurrence: GB)
  Receive Date: 20150528
  Receipt Date: 20150528
  Transmission Date: 20150821
  Serious: Yes (Hospitalization)
  Sender: FDA-Public Use
  Company Number: GB-FRI-1000076981

PATIENT
  Age: 0 Day
  Sex: Female
  Weight: 2.38 kg

DRUGS (3)
  1. LAXIDO [Concomitant]
     Active Substance: POLYETHYLENE GLYCOL 3350\POTASSIUM CHLORIDE\SODIUM BICARBONATE\SODIUM CHLORIDE
     Indication: CONSTIPATION
     Dosage: ONE DOSAGE FORM AS REQUIRED
     Route: 064
     Dates: start: 20140424
  2. CITALOPRAM [Suspect]
     Active Substance: CITALOPRAM HYDROBROMIDE
     Indication: MAJOR DEPRESSION
     Dosage: 20 MG
     Route: 064
     Dates: start: 20140602, end: 20140608
  3. CETIRIZINE [Concomitant]
     Active Substance: CETIRIZINE HYDROCHLORIDE
     Indication: SEASONAL ALLERGY
     Dosage: 10 MG AS REQUIRED
     Route: 064
     Dates: start: 20140424

REACTIONS (6)
  - Oxygen saturation decreased [Recovered/Resolved]
  - Foetal growth restriction [Unknown]
  - Sepsis neonatal [Unknown]
  - Jaundice neonatal [Unknown]
  - Neonatal respiratory distress syndrome [Recovered/Resolved]
  - Foetal exposure during pregnancy [Unknown]

NARRATIVE: CASE EVENT DATE: 20150122
